FAERS Safety Report 9242819 (Version 1)
Quarter: 2013Q2

REPORT INFORMATION
  Report Type: Spontaneous
  Country: BR (occurrence: BR)
  Receive Date: 20130419
  Receipt Date: 20130419
  Transmission Date: 20140414
  Serious: Yes (Life-Threatening, Other)
  Sender: FDA-Public Use
  Company Number: PHHY2013BR036640

PATIENT
  Sex: Female
  Weight: 83 kg

DRUGS (12)
  1. ONBREZ [Suspect]
     Indication: CHRONIC OBSTRUCTIVE PULMONARY DISEASE
     Dosage: 300 UG, QD
     Dates: start: 20130206
  2. DIUPRESS [Concomitant]
     Indication: DIURETIC THERAPY
     Dosage: UNK
     Route: 048
  3. ACETYLSALICYLIC ACID [Concomitant]
     Indication: CARDIAC DISORDER
     Dosage: 100 MG, QD
     Route: 048
  4. SIMVASTATIN [Concomitant]
     Indication: BLOOD CHOLESTEROL INCREASED
     Dosage: 40 MG, QD
     Route: 048
  5. OMEPRAZOLE [Concomitant]
     Indication: DYSPEPSIA
     Dosage: 40 MG, QD
     Route: 048
  6. GLIMEPIRIDE [Concomitant]
     Indication: BLOOD GLUCOSE DECREASED
     Dosage: 6 MG, QD
     Route: 048
  7. METFORMIN [Concomitant]
     Indication: BLOOD GLUCOSE DECREASED
     Dosage: 3 DF, QD
     Route: 048
  8. ATENSINA [Concomitant]
     Indication: CARDIAC DISORDER
     Dosage: UNK
     Route: 048
  9. CONCARDIO [Concomitant]
     Indication: CARDIAC DISORDER
     Dosage: 2.5 MG, QD
     Route: 048
  10. ONGLYZA [Concomitant]
     Indication: BLOOD GLUCOSE DECREASED
     Dosage: 5 MG, QD
     Route: 048
  11. PROCIMAX [Concomitant]
     Indication: DEPRESSION
     Dosage: 20 MG, QD
     Route: 048
     Dates: start: 20130201
  12. RIVOTRIL [Concomitant]
     Indication: DEPRESSION
     Dosage: 0.5 DF, QD
     Route: 048

REACTIONS (16)
  - Chronic obstructive pulmonary disease [Not Recovered/Not Resolved]
  - Bronchospasm [Not Recovered/Not Resolved]
  - Dyspnoea [Not Recovered/Not Resolved]
  - Cough [Not Recovered/Not Resolved]
  - Apparent death [Not Recovered/Not Resolved]
  - Respiratory tract inflammation [Recovered/Resolved]
  - Eye swelling [Not Recovered/Not Resolved]
  - Visual impairment [Not Recovered/Not Resolved]
  - Sinusitis [Not Recovered/Not Resolved]
  - Blood pressure decreased [Not Recovered/Not Resolved]
  - Eye pain [Not Recovered/Not Resolved]
  - Mouth injury [Recovered/Resolved]
  - Ear pain [Recovered/Resolved]
  - Gingival pain [Not Recovered/Not Resolved]
  - Nasal discomfort [Recovered/Resolved]
  - Nasopharyngitis [Not Recovered/Not Resolved]
